FAERS Safety Report 5652075-X (Version None)
Quarter: 2008Q1

REPORT INFORMATION
  Report Type: 
  Country: None (occurrence: None)
  Receive Date: 20080304
  Receipt Date: 20080225
  Transmission Date: 20080703
  Serious: Yes (Death)
  Sender: FDA-Public Use
  Company Number: 08H-161-0313923-00

PATIENT
  Age: 35 Year
  Sex: Female

DRUGS (1)
  1. PENTOTHAL [Suspect]
     Dosage: INTRAVENOUS
     Route: 042

REACTIONS (2)
  - CARDIAC ARREST [None]
  - SUICIDE ATTEMPT [None]
